FAERS Safety Report 7767554 (Version 6)
Quarter: 2012Q4

REPORT INFORMATION
  Report Type: 
  Country: US (occurrence: US)
  Receive Date: 20110120
  Receipt Date: 20121004
  Transmission Date: 20130627
  Serious: Yes (Death, Hospitalization, Disabling, Other)
  Sender: FDA-Public Use
  Company Number: US-009507513-1101USA01553

PATIENT

DRUGS (2)
  1. FOSAMAX [Suspect]
     Indication: OSTEOPENIA
     Dosage: 70 mg, UNK
     Route: 048
     Dates: start: 20030116, end: 20050829
  2. FOSAMAX [Suspect]
     Indication: OSTEOPOROSIS

REACTIONS (64)
  - Death [Fatal]
  - Osteonecrosis [Not Recovered/Not Resolved]
  - Bone graft [Unknown]
  - Cataract operation [Unknown]
  - Cataract operation [Unknown]
  - Gastric bypass [Unknown]
  - Cholecystectomy [Unknown]
  - Ankle operation [Unknown]
  - Osteoporosis [Unknown]
  - Eye laser surgery [Unknown]
  - Stress fracture [Unknown]
  - Femur fracture [Unknown]
  - Low turnover osteopathy [Unknown]
  - Gastric disorder [Unknown]
  - Gallbladder disorder [Unknown]
  - Osteonecrosis of jaw [Unknown]
  - Wrist fracture [Unknown]
  - Lumbar spinal stenosis [Unknown]
  - Neuropathy peripheral [Unknown]
  - Peripheral vascular disorder [Unknown]
  - Raynaud^s phenomenon [Unknown]
  - Sleep apnoea syndrome [Unknown]
  - Restless legs syndrome [Unknown]
  - Vocal cord polyp [Unknown]
  - Blood cholesterol increased [Unknown]
  - Bladder disorder [Unknown]
  - Bone marrow oedema [Unknown]
  - Bursa disorder [Unknown]
  - Foot fracture [Unknown]
  - Rib fracture [Unknown]
  - Osteoarthritis [Unknown]
  - Adverse event [Unknown]
  - Arthritis [Unknown]
  - Cataract [Unknown]
  - Affective disorder [Unknown]
  - Hypertension [Unknown]
  - Herpes virus infection [Unknown]
  - Migraine [Unknown]
  - Cataract [Unknown]
  - Cyst [Unknown]
  - Ventricular extrasystoles [Unknown]
  - Deposit eye [Unknown]
  - Weight increased [Unknown]
  - Pain in extremity [Not Recovered/Not Resolved]
  - Pain in extremity [Not Recovered/Not Resolved]
  - Arthralgia [Not Recovered/Not Resolved]
  - Back pain [Not Recovered/Not Resolved]
  - Fatigue [Unknown]
  - Diarrhoea [Unknown]
  - Peripheral arterial occlusive disease [Unknown]
  - Venous insufficiency [Unknown]
  - Varicose vein operation [Unknown]
  - Spinal osteoarthritis [Unknown]
  - Axonal neuropathy [Unknown]
  - Cervicobrachial syndrome [Unknown]
  - Cholelithiasis [Unknown]
  - Stress urinary incontinence [Unknown]
  - Skin lesion excision [Unknown]
  - Tooth extraction [Recovered/Resolved]
  - Foot fracture [Unknown]
  - Intervertebral disc operation [Unknown]
  - Oedema peripheral [Unknown]
  - Ankle fracture [Unknown]
  - Fracture nonunion [Not Recovered/Not Resolved]
